FAERS Safety Report 4933252-X (Version None)
Quarter: 2006Q1

REPORT INFORMATION
  Report Type: 
  Country: None (occurrence: None)
  Receive Date: 20060306
  Receipt Date: 20050824
  Transmission Date: 20060701
  Serious: Yes (Hospitalization, Other)
  Sender: FDA-Public Use
  Company Number: US-MERCK-0508USA04059

PATIENT
  Age: 63 Year
  Sex: Male

DRUGS (3)
  1. VIOXX [Suspect]
     Route: 048
     Dates: start: 20000530, end: 20040702
  2. CLARITIN [Concomitant]
     Route: 065
  3. ZANTAC [Concomitant]
     Route: 065

REACTIONS (25)
  - ABDOMINAL PAIN UPPER [None]
  - ANAEMIA [None]
  - ANGINA PECTORIS [None]
  - AORTIC VALVE INCOMPETENCE [None]
  - ARTERIAL HAEMORRHAGE [None]
  - CARDIOVASCULAR DISORDER [None]
  - CAROTID ARTERY DISEASE [None]
  - CAROTID ARTERY STENOSIS [None]
  - CEREBRAL ATROPHY [None]
  - CEREBROVASCULAR ACCIDENT [None]
  - CHEST PAIN [None]
  - CHRONIC OBSTRUCTIVE PULMONARY DISEASE [None]
  - DEHYDRATION [None]
  - DERMAL CYST [None]
  - GASTROENTERITIS [None]
  - GLYCOSYLATED HAEMOGLOBIN INCREASED [None]
  - HEMIANOPIA HOMONYMOUS [None]
  - HYPERTENSION [None]
  - MITRAL VALVE INCOMPETENCE [None]
  - SEBORRHOEIC KERATOSIS [None]
  - SINUSITIS [None]
  - SKIN NODULE [None]
  - TRANSIENT ISCHAEMIC ATTACK [None]
  - TRICUSPID VALVE INCOMPETENCE [None]
  - WEIGHT INCREASED [None]
